FAERS Safety Report 8051634-7 (Version None)
Quarter: 2012Q1

REPORT INFORMATION
  Report Type: 
  Country: None (occurrence: None)
  Receive Date: 20120118
  Receipt Date: 20120105
  Transmission Date: 20120608
  Serious: No
  Sender: FDA-Public Use
  Company Number: US-BIOGENIDEC-2007BI022742

PATIENT
  Sex: Female

DRUGS (4)
  1. TYSABRI [Suspect]
     Indication: MULTIPLE SCLEROSIS
     Route: 042
     Dates: start: 20070101
  2. TYSABRI [Suspect]
     Route: 042
     Dates: start: 20071130, end: 20080407
  3. TYSABRI [Suspect]
     Route: 042
     Dates: start: 20080917, end: 20081022
  4. TYSABRI [Suspect]
     Route: 042
     Dates: start: 20090102

REACTIONS (10)
  - STRESS [None]
  - MEMORY IMPAIRMENT [None]
  - BACK PAIN [None]
  - GAIT DISTURBANCE [None]
  - SCAR [None]
  - FATIGUE [None]
  - POOR VENOUS ACCESS [None]
  - ABASIA [None]
  - MYALGIA [None]
  - MALAISE [None]
